FAERS Safety Report 25090560 (Version 1)
Quarter: 2025Q1

REPORT INFORMATION
  Report Type: Spontaneous
  Country: US (occurrence: None)
  Receive Date: 20250318
  Receipt Date: 20250318
  Transmission Date: 20250408
  Serious: Yes (Hospitalization)
  Sender: FDA-CTU
  Company Number: None

PATIENT
  Age: 67 Year
  Sex: Female
  Weight: 91 kg

DRUGS (2)
  1. CISPLATIN [Suspect]
     Active Substance: CISPLATIN
  2. ALIMTA [Suspect]
     Active Substance: PEMETREXED DISODIUM

REACTIONS (6)
  - Nausea [None]
  - Vomiting [None]
  - Hypophagia [None]
  - Syncope [None]
  - Hypokalaemia [None]
  - Hypovolaemic shock [None]

NARRATIVE: CASE EVENT DATE: 20250312
